FAERS Safety Report 12188216 (Version 2)
Quarter: 2016Q1

REPORT INFORMATION
  Report Type: Spontaneous
  Country: US (occurrence: US)
  Receive Date: 20160317
  Receipt Date: 20160321
  Transmission Date: 20160526
  Serious: No
  Sender: FDA-Public Use
  Company Number: US-GLAXOSMITHKLINE-US2016037086

PATIENT
  Age: 69 Year
  Sex: Female

DRUGS (10)
  1. ESTAZOLAM. [Concomitant]
     Active Substance: ESTAZOLAM
  2. ABILIFY [Concomitant]
     Active Substance: ARIPIPRAZOLE
  3. WELLBUTRIN XL [Suspect]
     Active Substance: BUPROPION HYDROCHLORIDE
     Indication: BIPOLAR DISORDER
  4. WELLBUTRIN XL [Suspect]
     Active Substance: BUPROPION HYDROCHLORIDE
     Indication: DEPRESSION
     Dosage: 3 DF, 1D
     Route: 048
     Dates: start: 2001
  5. LISINOPRIL. [Concomitant]
     Active Substance: LISINOPRIL
  6. LEXAPRO [Concomitant]
     Active Substance: ESCITALOPRAM OXALATE
  7. ZOLPIDEM [Concomitant]
     Active Substance: ZOLPIDEM\ZOLPIDEM TARTRATE
  8. WELLBUTRIN [Suspect]
     Active Substance: BUPROPION HYDROCHLORIDE
     Indication: PRODUCT USED FOR UNKNOWN INDICATION
     Dosage: 350 MG, QD
     Dates: start: 20160314
  9. AMLODIPINE [Concomitant]
     Active Substance: AMLODIPINE BESYLATE
  10. ANASTROZOLE. [Concomitant]
     Active Substance: ANASTROZOLE

REACTIONS (2)
  - Accidental overdose [Unknown]
  - Dizziness [Not Recovered/Not Resolved]

NARRATIVE: CASE EVENT DATE: 20160313
